FAERS Safety Report 17120484 (Version 1)
Quarter: 2019Q4

REPORT INFORMATION
  Report Type: Spontaneous
  Country: FR (occurrence: FR)
  Receive Date: 20191206
  Receipt Date: 20191206
  Transmission Date: 20200122
  Serious: Yes (Life-Threatening)
  Sender: FDA-Public Use
  Company Number: FR-ACCORD-163895

PATIENT
  Age: 26 Year
  Sex: Female
  Weight: 60 kg

DRUGS (17)
  1. CYTARABINE/CYTARABINE HYDROCHLORIDE/CYTARABINE OCFOSFATE [Suspect]
     Active Substance: CYTARABINE
     Indication: HODGKIN^S DISEASE
     Dosage: AS PART OF A DHAX AT D1 THEN A BEAM FROM D2 TO D5
     Route: 042
     Dates: start: 20191013, end: 20191016
  2. ZOPHREN [Concomitant]
     Active Substance: ONDANSETRON
  3. DIFICLIR [Concomitant]
     Active Substance: FIDAXOMICIN
     Dosage: STRENGTH: 200 MG
  4. CARMUSTINE. [Suspect]
     Active Substance: CARMUSTINE
     Indication: HODGKIN^S DISEASE
     Dosage: CYCLE BEAM C1J1
     Route: 042
     Dates: start: 20191012, end: 20191012
  5. PLITICAN [Concomitant]
     Active Substance: ALIZAPRIDE HYDROCHLORIDE
  6. TRIFLUCAN [Concomitant]
     Active Substance: FLUCONAZOLE
  7. INEXIUM [Concomitant]
     Active Substance: ESOMEPRAZOLE
     Dosage: STRENGTH: 20 MG
  8. TOBRADEX [Concomitant]
     Active Substance: DEXAMETHASONE\TOBRAMYCIN
  9. TAZOCILLINE [Concomitant]
     Active Substance: PIPERACILLIN SODIUM\TAZOBACTAM SODIUM
  10. EMEND [Concomitant]
     Active Substance: APREPITANT
     Dosage: STRENGTH: 125 MG AND  80 MG
  11. MELPHALAN. [Suspect]
     Active Substance: MELPHALAN
     Indication: HODGKIN^S DISEASE
     Dosage: D5 BEAM
     Route: 042
     Dates: start: 20191016, end: 20191016
  12. OXYNORM [Concomitant]
     Active Substance: OXYCODONE HYDROCHLORIDE
  13. DECAPEPTYL [Concomitant]
  14. ZELITREX [Concomitant]
     Active Substance: VALACYCLOVIR HYDROCHLORIDE
     Dosage: STRENGTH: 500 MG
  15. ETOPOSIDE. [Suspect]
     Active Substance: ETOPOSIDE
     Indication: HODGKIN^S DISEASE
     Dosage: FROM D2 TO D4 OF BEAM
     Route: 042
     Dates: start: 20191013, end: 20191016
  16. NEULASTA [Concomitant]
     Active Substance: PEGFILGRASTIM
  17. SPECIAFOLDINE [Concomitant]
     Active Substance: FOLIC ACID
     Dosage: STRENGTH: 5 MG

REACTIONS (2)
  - Off label use [Unknown]
  - Venoocclusive liver disease [Recovering/Resolving]

NARRATIVE: CASE EVENT DATE: 20191029
